FAERS Safety Report 7010131-8 (Version None)
Quarter: 2010Q3

REPORT INFORMATION
  Report Type: 
  Country: None (occurrence: None)
  Receive Date: 20100923
  Receipt Date: 20100914
  Transmission Date: 20110219
  Serious: Yes (Death, Hospitalization, Other)
  Sender: FDA-Public Use
  Company Number: JP-PFIZER INC-2010063271

PATIENT
  Age: 69 Year
  Sex: Female
  Weight: 42.5 kg

DRUGS (13)
  1. SUNITINIB MALATE [Suspect]
     Indication: RENAL CELL CARCINOMA
     Dosage: 25 MG, 1X/DAY
     Route: 048
     Dates: start: 20090602
  2. ETODOLAC [Concomitant]
     Dosage: UNK
     Route: 048
     Dates: start: 20090722
  3. MAG-LAX [Concomitant]
     Dosage: UNK
     Route: 048
  4. BIOFERMIN [Concomitant]
     Dosage: UNK
     Route: 048
  5. GASTER OD [Concomitant]
     Dosage: UNK
     Route: 048
  6. DECADRON [Concomitant]
     Dosage: UNK
     Route: 048
  7. VOLTAREN [Concomitant]
     Dosage: UNK
     Route: 054
  8. MYSLEE [Concomitant]
     Dosage: UNK
     Route: 048
     Dates: start: 20090709
  9. LACTEC [Concomitant]
     Route: 042
     Dates: start: 20090609, end: 20090808
  10. PENTAZOCINE LACTATE [Concomitant]
     Route: 042
     Dates: start: 20090609, end: 20090808
  11. OXYCONTIN [Concomitant]
     Dosage: UNK
     Route: 048
  12. URSO 250 [Concomitant]
     Dosage: UNK
     Route: 048
     Dates: start: 20090714
  13. CAPISTEN [Concomitant]
     Route: 042
     Dates: start: 20090808, end: 20090810

REACTIONS (9)
  - ANAEMIA [None]
  - DEATH [None]
  - DECREASED APPETITE [None]
  - DEVICE RELATED INFECTION [None]
  - GENERALISED OEDEMA [None]
  - HYPOPROTEINAEMIA [None]
  - HYPOTHYROIDISM [None]
  - NEURALGIA [None]
  - PANCREATIC ENZYME ABNORMALITY [None]
